FAERS Safety Report 8302361-X (Version None)
Quarter: 2012Q2

REPORT INFORMATION
  Report Type: 
  Country: None (occurrence: None)
  Receive Date: 20120420
  Receipt Date: 20120411
  Transmission Date: 20120825
  Serious: Yes (Other)
  Sender: FDA-Public Use
  Company Number: JP-JNJFOC-20120314467

PATIENT
  Age: 87 Year
  Sex: Male

DRUGS (5)
  1. GOREISAN [Concomitant]
     Route: 048
  2. AN UNKNOWN MEDICATION [Concomitant]
     Route: 048
  3. TRAMADOL HYDROCHLORIDE AND ACETAMINOPHEN [Suspect]
     Indication: PRODUCT USED FOR UNKNOWN INDICATION
     Route: 048
     Dates: start: 20120312, end: 20120326
  4. ASPIRIN [Concomitant]
     Route: 048
  5. GOSHA-JINKI-GAN [Concomitant]
     Route: 048

REACTIONS (2)
  - SOMNOLENCE [None]
  - DEMENTIA [None]
